FAERS Safety Report 20534809 (Version 1)
Quarter: 2022Q1

REPORT INFORMATION
  Report Type: Other
  Country: US (occurrence: None)
  Receive Date: 20220302
  Receipt Date: 20220302
  Transmission Date: 20220423
  Serious: Yes (Other)
  Sender: FDA-Public Use
  Company Number: US-ROCHE-3030639

PATIENT
  Age: 51 Year
  Sex: Female
  Weight: 76.272 kg

DRUGS (3)
  1. OCREVUS [Suspect]
     Active Substance: OCRELIZUMAB
     Indication: Relapsing-remitting multiple sclerosis
     Dosage: DOSE IS THE ^ FULL DOSE^ ;ONGOING: YES
     Route: 042
  2. BENADRYL [Concomitant]
     Active Substance: DIPHENHYDRAMINE HYDROCHLORIDE
  3. COVID-19 VACCINE [Concomitant]

REACTIONS (5)
  - Fall [Unknown]
  - COVID-19 [Recovered/Resolved]
  - Fracture [Recovered/Resolved]
  - Exostosis [Recovered/Resolved]
  - Sluggishness [Recovered/Resolved]

NARRATIVE: CASE EVENT DATE: 20210822
